FAERS Safety Report 10429372 (Version 1)
Quarter: 2014Q3

REPORT INFORMATION
  Report Type: Spontaneous
  Country: DE (occurrence: DE)
  Receive Date: 20140904
  Receipt Date: 20140904
  Transmission Date: 20150326
  Serious: Yes (Other)
  Sender: FDA-Public Use
  Company Number: US-ASTRAZENECA-2014SE65712

PATIENT
  Age: 36 Year
  Sex: Female
  Weight: 90 kg

DRUGS (4)
  1. BLOPRESS [Suspect]
     Active Substance: CANDESARTAN CILEXETIL
     Indication: HYPERTENSION
     Route: 048
     Dates: start: 20130605, end: 20131125
  2. PRESINOL [Concomitant]
     Active Substance: METHYLDOPA
     Indication: HYPERTENSION
     Route: 048
     Dates: start: 20131126, end: 20140223
  3. L-THYROX [Concomitant]
     Active Substance: LEVOTHYROXINE SODIUM
     Indication: HYPOTHYROIDISM
     Route: 048
     Dates: start: 20130605, end: 20140223
  4. METFORMIN (NON AZ PRODUCT) [Suspect]
     Active Substance: METFORMIN HYDROCHLORIDE
     Indication: POLYCYSTIC OVARIES
     Route: 048
     Dates: start: 20130605, end: 20131125

REACTIONS (1)
  - Oligohydramnios [Recovered/Resolved]
